FAERS Safety Report 6229826-9 (Version None)
Quarter: 2009Q2

REPORT INFORMATION
  Report Type: 
  Country: None (occurrence: None)
  Receive Date: 20090615
  Receipt Date: 20090604
  Transmission Date: 20091009
  Serious: Yes (Hospitalization)
  Sender: FDA-Public Use
  Company Number: FI-ABBOTT-09P-055-0570056-00

PATIENT
  Sex: Male

DRUGS (11)
  1. PROCREN DEPOT 11.25 MG [Suspect]
     Indication: PROSTATE CANCER
     Route: 058
     Dates: end: 20090424
  2. RAMIPRIL [Concomitant]
     Indication: DRUG USE FOR UNKNOWN INDICATION
     Dosage: 1/2-1 X 1
     Dates: start: 20090424
  3. RAMIPRIL [Concomitant]
     Dosage: 0.5 X 1
  4. FURESIS [Concomitant]
     Indication: DRUG USE FOR UNKNOWN INDICATION
     Dosage: 2 + 1
     Dates: start: 20090414
  5. FURESIS [Concomitant]
     Dosage: 1 X 2
  6. MAREVAN FORTE [Concomitant]
     Indication: DRUG USE FOR UNKNOWN INDICATION
     Dates: start: 20090413
  7. MELATONIN [Concomitant]
     Indication: DRUG USE FOR UNKNOWN INDICATION
     Dosage: 1 X EVENING
     Dates: start: 20090413
  8. DIPYRIN [Concomitant]
     Indication: DRUG USE FOR UNKNOWN INDICATION
     Dosage: 1 X 3
     Dates: start: 20090413
  9. ORLOC [Concomitant]
     Indication: DRUG USE FOR UNKNOWN INDICATION
     Dosage: 1 X 1
     Dates: start: 20090413
  10. PANADOL FORTE [Concomitant]
     Indication: DRUG USE FOR UNKNOWN INDICATION
     Dosage: 1 X 2
  11. RISPERIDONE [Concomitant]
     Indication: DRUG USE FOR UNKNOWN INDICATION
     Dosage: 1 X 1

REACTIONS (6)
  - ABSCESS [None]
  - BLOOD CREATINE INCREASED [None]
  - COUGH [None]
  - HYPOTENSION [None]
  - OEDEMA [None]
  - WEIGHT DECREASED [None]
